FAERS Safety Report 26053239 (Version 1)
Quarter: 2025Q4

REPORT INFORMATION
  Report Type: Spontaneous
  Country: US (occurrence: None)
  Receive Date: 20251114
  Receipt Date: 20251114
  Transmission Date: 20260118
  Serious: Yes (unspecified)
  Sender: FDA-CTU
  Company Number: None

PATIENT
  Age: 90 Year
  Sex: Female

DRUGS (1)
  1. LENALIDOMIDE [Suspect]
     Active Substance: LENALIDOMIDE
     Indication: Plasma cell myeloma
     Dosage: 10MG QD ORAL?
     Route: 048
     Dates: start: 20250905, end: 20250914

REACTIONS (2)
  - Mental status changes [None]
  - Therapy cessation [None]

NARRATIVE: CASE EVENT DATE: 20250914
